FAERS Safety Report 5004590-X (Version None)
Quarter: 2006Q2

REPORT INFORMATION
  Report Type: 
  Country: None (occurrence: None)
  Receive Date: 20060512
  Receipt Date: 20060501
  Transmission Date: 20061013
  Serious: Yes (Hospitalization, Other)
  Sender: FDA-Public Use
  Company Number: HQWYE945512DEC05

PATIENT
  Age: 71 Year
  Sex: Female
  Weight: 53.6 kg

DRUGS (5)
  1. RAPAMUNE [Suspect]
     Indication: PROPHYLAXIS AGAINST TRANSPLANT REJECTION
     Dosage: 3 MG 1X PER 1 DAY, ORAL
     Route: 048
  2. TYLENOL W/ CODEINE [Concomitant]
  3. BACTRIM DS [Concomitant]
  4. MYCELEX [Concomitant]
  5. LABETALOL HCL [Concomitant]

REACTIONS (4)
  - ATRIAL THROMBOSIS [None]
  - COAGULOPATHY [None]
  - INTERNATIONAL NORMALISED RATIO INCREASED [None]
  - PROTHROMBIN TIME PROLONGED [None]
